FAERS Safety Report 5125750-3 (Version None)
Quarter: 2006Q4

REPORT INFORMATION
  Report Type: 
  Country: None (occurrence: None)
  Receive Date: 20061010
  Receipt Date: 20061010
  Transmission Date: 20070319
  Serious: Yes (Life-Threatening)
  Sender: FDA-Public Use
  Company Number: None

PATIENT
  Age: 32 Year
  Sex: Female
  Weight: 117.9352 kg

DRUGS (2)
  1. ORTHO EVRA [Suspect]
     Indication: MENOMETRORRHAGIA
     Dosage: ONE PATCH WEEKLY TRANSDERMAL
     Route: 062
  2. ORTHO EVRA [Suspect]
     Indication: MENSTRUATION IRREGULAR
     Dosage: ONE PATCH WEEKLY TRANSDERMAL
     Route: 062

REACTIONS (2)
  - DEEP VEIN THROMBOSIS [None]
  - PAIN IN EXTREMITY [None]
